FAERS Safety Report 21812814 (Version 1)
Quarter: 2023Q1

REPORT INFORMATION
  Report Type: Report from Study
  Country: US (occurrence: US)
  Receive Date: 20230103
  Receipt Date: 20230103
  Transmission Date: 20230418
  Serious: No
  Sender: FDA-Public Use
  Company Number: US-ABBVIE-4209026

PATIENT
  Sex: Female

DRUGS (3)
  1. RINVOQ [Suspect]
     Active Substance: UPADACITINIB
     Indication: Psoriasis
     Route: 048
  2. EFFEXOR [Concomitant]
     Active Substance: VENLAFAXINE HYDROCHLORIDE
     Indication: Depression
     Route: 048
     Dates: start: 20221109, end: 20221116
  3. Moderna [Concomitant]
     Indication: COVID-19 immunisation

REACTIONS (5)
  - Laboratory test abnormal [Unknown]
  - Fatigue [Unknown]
  - Myalgia [Recovering/Resolving]
  - Arthralgia [Recovering/Resolving]
  - Neck pain [Recovering/Resolving]

NARRATIVE: CASE EVENT DATE: 20220101
